FAERS Safety Report 5400376-2 (Version None)
Quarter: 2007Q3

REPORT INFORMATION
  Report Type: 
  Country: None (occurrence: None)
  Receive Date: 20070730
  Receipt Date: 20070723
  Transmission Date: 20080115
  Serious: Yes (Hospitalization)
  Sender: FDA-Public Use
  Company Number: B0475480A

PATIENT
  Age: 78 Year
  Sex: Female
  Weight: 42 kg

DRUGS (11)
  1. ALLOPURINOL [Suspect]
     Indication: HYPERURICAEMIA
     Dosage: 100MG PER DAY
     Route: 048
     Dates: start: 20070511, end: 20070601
  2. TOWAMIN [Suspect]
     Indication: HYPERTENSION
     Dosage: 50MG PER DAY
     Route: 048
     Dates: end: 20070604
  3. DIOVAN [Suspect]
     Indication: HYPERTENSION
     Dosage: 80MG TWICE PER DAY
     Route: 048
     Dates: end: 20070604
  4. JAPANESE MEDICATION [Concomitant]
     Indication: HYPERTENSION
     Dosage: 5MG TWICE PER DAY
     Route: 048
     Dates: end: 20070604
  5. CONIEL [Suspect]
     Indication: HYPERTENSION
     Dosage: 4MG TWICE PER DAY
     Route: 048
     Dates: end: 20070604
  6. NATRIX [Suspect]
     Indication: HYPERTENSION
     Dosage: 2MG PER DAY
     Route: 048
     Dates: end: 20070604
  7. FUROSEMIDE [Suspect]
     Indication: HYPERTENSION
     Dosage: 40MG PER DAY
     Route: 048
     Dates: end: 20070604
  8. GLYBURIDE [Suspect]
     Indication: DIABETES MELLITUS
     Dosage: 1.25MG PER DAY
     Route: 048
     Dates: end: 20070619
  9. TAGAMET [Suspect]
     Indication: GASTRITIS
     Dosage: 200MG TWICE PER DAY
     Route: 048
     Dates: end: 20070604
  10. MECOBALAMIN [Suspect]
     Indication: NEUROPATHY PERIPHERAL
     Dosage: 500MCG TWICE PER DAY
     Route: 048
     Dates: end: 20070604
  11. HALCION [Concomitant]
     Indication: INSOMNIA
     Dosage: .25MG PER DAY
     Route: 048
     Dates: end: 20070604

REACTIONS (11)
  - BLOOD GLUCOSE INCREASED [None]
  - DRUG ERUPTION [None]
  - EATING DISORDER [None]
  - MOUTH ULCERATION [None]
  - OEDEMA MOUTH [None]
  - ORAL INTAKE REDUCED [None]
  - ORAL NEOPLASM [None]
  - RASH [None]
  - RASH GENERALISED [None]
  - STEVENS-JOHNSON SYNDROME [None]
  - STOMATITIS [None]
